FAERS Safety Report 9241790 (Version 2)
Quarter: 2014Q2

REPORT INFORMATION
  Report Type: Spontaneous
  Country: US (occurrence: US)
  Receive Date: 20130419
  Receipt Date: 20140430
  Transmission Date: 20141212
  Serious: No
  Sender: FDA-Public Use
  Company Number: US-SANOFI-AVENTIS-2013SA033342

PATIENT
  Age: 62 Year
  Sex: Male

DRUGS (3)
  1. ENOXAPARIN SODIUM - WINTHROP [Suspect]
     Indication: COAGULOPATHY
     Dosage: 130MG (20MG WASTE)
     Route: 051
     Dates: start: 20120914
  2. ALPRAZOLAM [Concomitant]
     Indication: ANXIETY
     Dates: start: 20130326
  3. ZOLPIDEM [Concomitant]
     Indication: INSOMNIA
     Dates: start: 20130128

REACTIONS (4)
  - Abdominal pain upper [Recovered/Resolved]
  - Muscle spasms [Recovered/Resolved]
  - Paraesthesia [Recovered/Resolved]
  - Tremor [Recovered/Resolved]
